FAERS Safety Report 6904236-7 (Version None)
Quarter: 2010Q3

REPORT INFORMATION
  Report Type: 
  Country: None (occurrence: None)
  Receive Date: 20100804
  Receipt Date: 20090403
  Transmission Date: 20110219
  Serious: No
  Sender: FDA-Public Use
  Company Number: US-PFIZER INC-2009193783

PATIENT

DRUGS (3)
  1. LYRICA [Suspect]
     Indication: ANXIETY
  2. ALPRAZOLAM [Concomitant]
  3. XANAX [Concomitant]

REACTIONS (7)
  - ANXIETY [None]
  - BALANCE DISORDER [None]
  - COORDINATION ABNORMAL [None]
  - DIZZINESS [None]
  - DRY MOUTH [None]
  - DYSPNOEA [None]
  - OROPHARYNGEAL PAIN [None]
